FAERS Safety Report 8217928-7 (Version None)
Quarter: 2012Q1

REPORT INFORMATION
  Report Type: 
  Country: None (occurrence: None)
  Receive Date: 20120314
  Receipt Date: 20120228
  Transmission Date: 20120608
  Serious: Yes (Other)
  Sender: FDA-Public Use
  Company Number: B0786428A

PATIENT
  Age: 24 Year
  Sex: Female

DRUGS (4)
  1. ZANAMIVIR (FORMULATION UNKNOWN) (GENERIC) (ZANAMIVIR) [Suspect]
     Indication: PRODUCT USED FOR UNKNOWN INDICATION
  2. ERYTHROMYCIN [Suspect]
     Indication: RESPIRATORY DISORDER
  3. CEFUROXIME SODIUM [Suspect]
     Indication: RESPIRATORY DISORDER
  4. OSELTAMIVIR PHOSPHATE [Suspect]
     Indication: H1N1 INFLUENZA

REACTIONS (3)
  - ABORTION SPONTANEOUS [None]
  - MULTI-ORGAN FAILURE [None]
  - MATERNAL EXPOSURE DURING PREGNANCY [None]
